FAERS Safety Report 25454890 (Version 1)
Quarter: 2025Q2

REPORT INFORMATION
  Report Type: Spontaneous
  Country: NL (occurrence: NL)
  Receive Date: 20250619
  Receipt Date: 20250619
  Transmission Date: 20250717
  Serious: Yes (Other)
  Sender: RANBAXY
  Company Number: NL-SUN PHARMACEUTICAL INDUSTRIES LTD-2025RR-512498

PATIENT
  Age: 61 Year
  Sex: Male
  Weight: 85 kg

DRUGS (2)
  1. TETRABENAZINE [Suspect]
     Active Substance: TETRABENAZINE
     Indication: Muscle spasms
     Dosage: 1DD
     Route: 048
     Dates: start: 20250128
  2. TETRABENAZINE [Suspect]
     Active Substance: TETRABENAZINE
     Indication: Dystonia

REACTIONS (1)
  - Erectile dysfunction [Not Recovered/Not Resolved]
